FAERS Safety Report 14686443 (Version 1)
Quarter: 2018Q1

REPORT INFORMATION
  Report Type: Spontaneous
  Country: US (occurrence: US)
  Receive Date: 20180327
  Receipt Date: 20180327
  Transmission Date: 20180509
  Serious: Yes (Other)
  Sender: FDA-Public Use
  Company Number: US-NOVEN PHARMACEUTICALS, INC.-US2018000164

PATIENT

DRUGS (3)
  1. VITAMINS [Concomitant]
     Active Substance: VITAMINS
  2. MINIVELLE [Suspect]
     Active Substance: ESTRADIOL
     Indication: HORMONE REPLACEMENT THERAPY
     Dosage: 0.05 MG, 2/WK EVERY WEDNESDAY AND SUNDAY
     Route: 062
     Dates: start: 2017, end: 2017
  3. MINIVELLE [Suspect]
     Active Substance: ESTRADIOL
     Indication: VAGINAL HAEMORRHAGE
     Dosage: 0.075 MG, 2/WK EVERY WEDNESDAY AND SUNDAY
     Route: 062
     Dates: start: 2017

REACTIONS (11)
  - Polymenorrhoea [Unknown]
  - Menorrhagia [Unknown]
  - Menstruation irregular [Unknown]
  - Uterine enlargement [Unknown]
  - Hormone level abnormal [Unknown]
  - Vaginal haemorrhage [Unknown]
  - Product adhesion issue [Not Recovered/Not Resolved]
  - Off label use [Not Recovered/Not Resolved]
  - Hysterosalpingo-oophorectomy [Recovered/Resolved]
  - Wrong technique in product usage process [Recovered/Resolved]
  - Drug ineffective [Recovered/Resolved]

NARRATIVE: CASE EVENT DATE: 2017
